FAERS Safety Report 20716607 (Version 1)
Quarter: 2022Q2

REPORT INFORMATION
  Report Type: Spontaneous
  Country: US (occurrence: US)
  Receive Date: 20220416
  Receipt Date: 20220416
  Transmission Date: 20220721
  Serious: Yes (Other)
  Sender: FDA-Public Use
  Company Number: US-TEVA-2022-US-2026300

PATIENT
  Age: 25 Year

DRUGS (2)
  1. ESTRADIOL [Suspect]
     Active Substance: ESTRADIOL
     Indication: Gender reassignment therapy
     Route: 065
  2. ESTRADIOL [Suspect]
     Active Substance: ESTRADIOL
     Route: 065

REACTIONS (6)
  - Suicidal ideation [Recovered/Resolved]
  - Allergic reaction to excipient [Unknown]
  - Depression [Unknown]
  - Eating disorder [Unknown]
  - Depressed mood [Unknown]
  - Loss of personal independence in daily activities [Unknown]
